FAERS Safety Report 8613257 (Version 4)
Quarter: 2013Q2

REPORT INFORMATION
  Report Type: Report from Study
  Country: US (occurrence: US)
  Receive Date: 20120613
  Receipt Date: 20130522
  Transmission Date: 20140414
  Serious: Yes (Hospitalization, Other)
  Sender: FDA-Public Use
  Company Number: US-ACTELION-A-NJ2012-62652

PATIENT
  Age: 56 Year
  Sex: Female

DRUGS (23)
  1. TRACLEER [Suspect]
     Indication: PULMONARY ARTERIAL HYPERTENSION
     Dosage: 125 MG, BID
     Route: 048
  2. ADCIRCA [Concomitant]
  3. LOVAZA [Concomitant]
  4. COLACE [Concomitant]
  5. FLUTICASONE [Concomitant]
  6. TRICOR [Concomitant]
  7. HUMULIN R [Concomitant]
  8. PREMARIN [Concomitant]
  9. ATIVAN [Concomitant]
  10. ZANAFLEX [Concomitant]
  11. NEURONTIN [Concomitant]
  12. COREG [Concomitant]
  13. SYNTHROID [Concomitant]
  14. ALLOPURINOL [Concomitant]
  15. DEMADEX [Concomitant]
  16. SPIRIVA [Concomitant]
  17. CELEXA [Concomitant]
  18. LISINOPRIL [Concomitant]
  19. ALBUTEROL [Concomitant]
  20. VITAMIN D [Concomitant]
  21. POLY-IRON [Concomitant]
  22. OMEPRAZOLE [Concomitant]
  23. LORTAB [Concomitant]

REACTIONS (17)
  - Cholecystitis [Unknown]
  - Cholecystectomy [Unknown]
  - Haemorrhoids [Unknown]
  - Haemorrhoid operation [Unknown]
  - Renal failure chronic [Unknown]
  - Hypoglycaemia [Unknown]
  - Dyspnoea [Recovering/Resolving]
  - Gastrointestinal haemorrhage [Recovered/Resolved]
  - Iron deficiency anaemia [Recovered/Resolved]
  - Hypotension [Recovered/Resolved]
  - Packed red blood cell transfusion [Recovered/Resolved]
  - Mineral supplementation [Not Recovered/Not Resolved]
  - Renal impairment [Not Recovered/Not Resolved]
  - Fatigue [Not Recovered/Not Resolved]
  - Dyspnoea exertional [Not Recovered/Not Resolved]
  - Oedema peripheral [Not Recovered/Not Resolved]
  - Weight increased [Not Recovered/Not Resolved]
